FAERS Safety Report 17388853 (Version 1)
Quarter: 2020Q1

REPORT INFORMATION
  Report Type: Spontaneous
  Country: US (occurrence: US)
  Receive Date: 20200123
  Receipt Date: 20200123
  Transmission Date: 20200409
  Serious: Yes (Hospitalization)
  Sender: FDA-Public Use
  Company Number: None

PATIENT
  Age: 49 Year
  Sex: Female

DRUGS (17)
  1. DICLOFENAC [Concomitant]
     Active Substance: DICLOFENAC
  2. DIPHENATROP [Concomitant]
  3. ESTRADIOL. [Concomitant]
     Active Substance: ESTRADIOL
  4. GABAPENTIN. [Concomitant]
     Active Substance: GABAPENTIN
  5. PRAMIPEXOLE. [Concomitant]
     Active Substance: PRAMIPEXOLE
  6. PROMETHAZINE [Concomitant]
     Active Substance: PROMETHAZINE HYDROCHLORIDE
  7. DULOXETINE. [Concomitant]
     Active Substance: DULOXETINE
  8. HYDROCO/APAP [Concomitant]
     Active Substance: ACETAMINOPHEN\HYDROCODONE
  9. MESALAMINE. [Concomitant]
     Active Substance: MESALAMINE
  10. METHOCARBAM [Concomitant]
     Active Substance: METHOCARBAMOL
  11. TRAMADOL HCL ER [Concomitant]
  12. HYDROXYZPAM [Concomitant]
  13. ONDANETRON [Concomitant]
  14. LOPERAMIDE [Concomitant]
     Active Substance: LOPERAMIDE
  15. HUMIRA [Suspect]
     Active Substance: ADALIMUMAB
     Dosage: ?          OTHER DOSE:1 PEN;OTHER FREQUENCY:Q10D;?
     Route: 058
     Dates: start: 20190503
  16. HYOSCYAMINE. [Concomitant]
     Active Substance: HYOSCYAMINE
  17. TIZANIDINE. [Concomitant]
     Active Substance: TIZANIDINE

REACTIONS (1)
  - Condition aggravated [None]

NARRATIVE: CASE EVENT DATE: 20191225
